FAERS Safety Report 8871403 (Version 1)
Quarter: 2012Q4

REPORT INFORMATION
  Report Type: 
  Country: US (occurrence: US)
  Receive Date: 20121023
  Receipt Date: 20121023
  Transmission Date: 20130627
  Serious: Yes (Hospitalization)
  Sender: FDA-Public Use
  Company Number: US-B.I. PHARMACEUTICALS,INC./RIDGEFIELD-2012-BP-26174BP

PATIENT
  Age: 64 Year
  Sex: Female
  Weight: 42 kg

DRUGS (7)
  1. SPIRIVA [Suspect]
     Indication: CHRONIC OBSTRUCTIVE PULMONARY DISEASE
     Dosage: 18 mcg
     Route: 055
     Dates: start: 20110711
  2. ADVAIR [Concomitant]
     Indication: CHRONIC OBSTRUCTIVE PULMONARY DISEASE
     Dosage: 250 mg/50 mg; 500 mg/100 mg
     Route: 055
     Dates: start: 201110
  3. MULTIVITAMIN [Concomitant]
     Indication: SUPPLEMENTATION THERAPY
     Route: 048
     Dates: start: 2007
  4. PROAIR [Concomitant]
     Indication: CHRONIC OBSTRUCTIVE PULMONARY DISEASE
     Dosage: 180 mcg
     Route: 055
     Dates: start: 201110
  5. DIAZEPAM [Concomitant]
     Indication: SLEEP DISORDER
     Dosage: 4 mg
     Route: 048
     Dates: start: 2011
  6. DIAZEPAM [Concomitant]
     Indication: ANXIETY
  7. CALCIUM [Concomitant]
     Indication: SUPPLEMENTATION THERAPY
     Dates: start: 2007

REACTIONS (1)
  - Palpitations [Recovered/Resolved]
